FAERS Safety Report 5074092-3 (Version None)
Quarter: 2006Q3

REPORT INFORMATION
  Report Type: 
  Country: None (occurrence: None)
  Receive Date: 20060808
  Receipt Date: 20060622
  Transmission Date: 20061208
  Serious: Yes (Death, Life-Threatening)
  Sender: FDA-Public Use
  Company Number: JP-SANOFI-SYNTHELABO-A01200604954

PATIENT
  Age: 77 Year
  Sex: Male
  Weight: 53 kg

DRUGS (16)
  1. BACLOFEN [Concomitant]
     Route: 042
  2. PAZUCROSS [Concomitant]
  3. LASIX [Concomitant]
     Route: 042
     Dates: start: 20060603
  4. PREDONINE [Concomitant]
     Route: 042
     Dates: start: 20060529, end: 20060611
  5. DORMICUM [Concomitant]
     Dosage: 12-24 MG
     Route: 042
     Dates: start: 20060528, end: 20060611
  6. RADICUT [Concomitant]
     Dosage: 30 MGX2
     Route: 042
     Dates: start: 20060528, end: 20060609
  7. CATACLOT [Concomitant]
     Dosage: 80 MGX2
     Route: 042
     Dates: start: 20060528, end: 20060530
  8. MEROPEN [Concomitant]
     Dosage: 0.5 GX2 - 1 GX2
     Route: 042
     Dates: start: 20060526, end: 20060609
  9. ERYTHROCIN [Concomitant]
     Route: 042
     Dates: start: 20060526, end: 20060526
  10. SOLU-MEDROL [Suspect]
     Route: 042
     Dates: start: 20060526, end: 20060528
  11. DEXART [Suspect]
     Route: 042
     Dates: start: 20060522, end: 20060522
  12. KYTRIL [Suspect]
     Route: 042
     Dates: start: 20060522, end: 20060522
  13. CALCIUM LEVOFOLINATE [Suspect]
     Route: 042
     Dates: start: 20060522, end: 20060522
  14. OXALIPLATIN [Suspect]
     Indication: RECTAL CANCER
     Dosage: 100 MG/BODY=67.6 MG/M2
     Route: 042
     Dates: start: 20060522, end: 20060522
  15. FLUOROURACIL [Suspect]
     Route: 040
     Dates: start: 20060522, end: 20060522
  16. FLUOROURACIL [Suspect]
     Route: 041
     Dates: start: 20060522, end: 20060522

REACTIONS (4)
  - CEREBRAL INFARCTION [None]
  - HAEMOGLOBIN DECREASED [None]
  - INTERSTITIAL LUNG DISEASE [None]
  - THROMBOCYTOPENIA [None]
